FAERS Safety Report 4676312-3 (Version None)
Quarter: 2005Q2

REPORT INFORMATION
  Report Type: 
  Country: None (occurrence: None)
  Receive Date: 20050527
  Receipt Date: 20050218
  Transmission Date: 20051028
  Serious: Yes (Hospitalization)
  Sender: FDA-Public Use
  Company Number: US-GLAXOSMITHKLINE-A0546318A

PATIENT
  Age: 56 Year
  Sex: Female

DRUGS (3)
  1. WELLBUTRIN [Suspect]
     Indication: DEPRESSION
     Dosage: 300MG PER DAY
     Route: 048
     Dates: start: 20040601
  2. ATIVAN [Concomitant]
  3. GEODON [Concomitant]

REACTIONS (3)
  - CONDITION AGGRAVATED [None]
  - POLLAKIURIA [None]
  - WEIGHT DECREASED [None]
